FAERS Safety Report 16752411 (Version 2)
Quarter: 2022Q1

REPORT INFORMATION
  Report Type: Report from Study
  Country: US (occurrence: US)
  Receive Date: 20190828
  Receipt Date: 20220114
  Transmission Date: 20220424
  Serious: No
  Sender: FDA-Public Use
  Company Number: US-SHIRE-US201927782

PATIENT
  Sex: Female

DRUGS (14)
  1. HUMAN IMMUNOGLOBULIN G [Suspect]
     Active Substance: HUMAN IMMUNOGLOBULIN G
     Indication: Primary immunodeficiency syndrome
     Dosage: UNK UNK, 1/WEEK
     Route: 042
  2. HUMAN IMMUNOGLOBULIN G [Suspect]
     Active Substance: HUMAN IMMUNOGLOBULIN G
     Dosage: 12 GRAM, 1/WEEK
     Route: 058
     Dates: start: 20180718
  3. DIPHENHYDRAMINE [Concomitant]
     Active Substance: DIPHENHYDRAMINE
  4. ATENOLOL [Concomitant]
     Active Substance: ATENOLOL
  5. EPINEPHRINE [Concomitant]
     Active Substance: EPINEPHRINE
  6. PREDNISONE [Concomitant]
     Active Substance: PREDNISONE
  7. VIORELE [Concomitant]
     Active Substance: DESOGESTREL\ETHINYL ESTRADIOL
  8. TRAMADOL [Concomitant]
     Active Substance: TRAMADOL
  9. PLAQUENIL [Concomitant]
     Active Substance: HYDROXYCHLOROQUINE SULFATE
  10. ACETAMINOPHEN [Concomitant]
     Active Substance: ACETAMINOPHEN
  11. SINGULAIR [Concomitant]
     Active Substance: MONTELUKAST SODIUM
  12. GLUCOSAMINE [Concomitant]
     Active Substance: GLUCOSAMINE
  13. CHONDROITIN [Concomitant]
     Active Substance: CHONDROITIN
  14. Lmx [Concomitant]

REACTIONS (5)
  - Sinusitis [Unknown]
  - Ill-defined disorder [Unknown]
  - Therapeutic response unexpected [Unknown]
  - Inappropriate schedule of product administration [Unknown]
  - Inability to afford medication [Unknown]
